FAERS Safety Report 4946509-3 (Version None)
Quarter: 2006Q1

REPORT INFORMATION
  Report Type: 
  Country: None (occurrence: None)
  Receive Date: 20060317
  Receipt Date: 20060307
  Transmission Date: 20060701
  Serious: Yes (Hospitalization)
  Sender: FDA-Public Use
  Company Number: US-AVENTIS-200612276US

PATIENT
  Sex: Male

DRUGS (4)
  1. LANTUS [Suspect]
     Indication: DIABETES MELLITUS NON-INSULIN-DEPENDENT
     Dosage: DOSE: 21-10; DOSE UNIT: UNITS
  2. HUMULIN 70/30 [Concomitant]
     Dosage: DOSE: UNKNOWN
  3. ENALAPRIL MALEATE [Concomitant]
     Dosage: DOSE: UNKNOWN
  4. LIPITOR [Concomitant]
     Dosage: DOSE: UNKNOWN

REACTIONS (5)
  - HEART RATE IRREGULAR [None]
  - LOSS OF CONSCIOUSNESS [None]
  - PRURITUS [None]
  - PRURITUS GENERALISED [None]
  - SYNCOPE [None]
